FAERS Safety Report 5709984-2 (Version None)
Quarter: 2008Q2

REPORT INFORMATION
  Report Type: 
  Country: None (occurrence: None)
  Receive Date: 20080418
  Receipt Date: 20070720
  Transmission Date: 20081010
  Serious: No
  Sender: FDA-Public Use
  Company Number: US-ASTRAZENECA-2007UW17601

PATIENT
  Age: 58 Year
  Sex: Female
  Weight: 64 kg

DRUGS (7)
  1. TOPROL-XL [Suspect]
     Indication: PALPITATIONS
     Route: 048
     Dates: start: 20030101, end: 20060101
  2. TOPROL-XL [Suspect]
     Indication: BLOOD PRESSURE
     Route: 048
     Dates: start: 20030101, end: 20060101
  3. TOPROL-XL [Suspect]
     Indication: PANIC ATTACK
     Route: 048
     Dates: start: 20030101, end: 20060101
  4. TOPROL-XL [Suspect]
     Route: 048
     Dates: start: 20060101
  5. TOPROL-XL [Suspect]
     Route: 048
     Dates: start: 20060101
  6. TOPROL-XL [Suspect]
     Route: 048
     Dates: start: 20060101
  7. LIBRIUM [Concomitant]
     Indication: ANXIETY

REACTIONS (5)
  - DIZZINESS [None]
  - MEMORY IMPAIRMENT [None]
  - MIGRAINE [None]
  - WEIGHT DECREASED [None]
  - WEIGHT INCREASED [None]
